FAERS Safety Report 6313075-X (Version None)
Quarter: 2009Q3

REPORT INFORMATION
  Report Type: 
  Country: None (occurrence: None)
  Receive Date: 20090818
  Receipt Date: 20090810
  Transmission Date: 20100115
  Serious: Yes (Other)
  Sender: FDA-Public Use
  Company Number: US-ASTRAZENECA-2007UW09613

PATIENT
  Age: 47 Year
  Sex: Male

DRUGS (25)
  1. SEROQUEL [Suspect]
     Indication: SLEEP DISORDER
     Route: 048
     Dates: start: 20020626, end: 20060801
  2. SEROQUEL [Suspect]
     Indication: SCHIZOAFFECTIVE DISORDER
     Route: 048
     Dates: start: 20020626, end: 20060801
  3. SEROQUEL [Suspect]
     Indication: DEPRESSION
     Route: 048
     Dates: start: 20020626, end: 20060801
  4. SEROQUEL [Suspect]
     Route: 048
     Dates: start: 20051206
  5. SEROQUEL [Suspect]
     Route: 048
     Dates: start: 20051206
  6. SEROQUEL [Suspect]
     Route: 048
     Dates: start: 20051206
  7. SEROQUEL [Suspect]
     Dosage: 100-800MG
     Route: 048
  8. SEROQUEL [Suspect]
     Dosage: 100-800MG
     Route: 048
  9. SEROQUEL [Suspect]
     Dosage: 100-800MG
     Route: 048
  10. RISPERDAL [Suspect]
     Dosage: 1 MG - 4 MG
     Route: 048
     Dates: start: 20051204
  11. METFORMIN [Concomitant]
     Indication: TYPE 2 DIABETES MELLITUS
     Dosage: 500 MG EVERY MORNING, 1000 MG TWO TIMES A DAY
     Dates: start: 20051205
  12. LEXAPRO [Concomitant]
     Dosage: 10 MG, 20 MG
     Route: 048
     Dates: start: 20051204
  13. NOVOLIN R [Concomitant]
     Dosage: 70 / 30 27 UNITS SQ IN AM AND 30 UNITS SQ AT 1800
     Dates: start: 20051205
  14. PROZAC [Concomitant]
     Dates: start: 20051121
  15. COGENTIN [Concomitant]
     Dates: start: 20051121
  16. CLONIDINE [Concomitant]
     Dates: start: 20051121, end: 20051205
  17. HUMULIN R [Concomitant]
     Indication: TYPE 1 DIABETES MELLITUS
     Dosage: 70/30 40 UNITS IN THE AM, 37 UNITS IN THE EVENING
     Dates: start: 20051121
  18. LORAZEPAM [Concomitant]
     Dates: start: 20051204
  19. GLYBURIDE [Concomitant]
     Dates: start: 20051205
  20. AMBIEN [Concomitant]
     Dates: start: 20051205
  21. HALDOL [Concomitant]
     Dates: start: 20051201
  22. NAVANE [Concomitant]
     Dates: start: 20020101
  23. RESTORIL [Concomitant]
     Dates: start: 20060101
  24. LITHIUM [Concomitant]
  25. WELLBUTRIN [Concomitant]
     Dates: start: 20060101

REACTIONS (10)
  - BACK PAIN [None]
  - DIABETES MELLITUS INADEQUATE CONTROL [None]
  - DIABETIC NEUROPATHY [None]
  - GLYCOSYLATED HAEMOGLOBIN INCREASED [None]
  - KETOACIDOSIS [None]
  - OBESITY [None]
  - OSTEOARTHRITIS [None]
  - PANCREATITIS ACUTE [None]
  - TYPE 1 DIABETES MELLITUS [None]
  - TYPE 2 DIABETES MELLITUS [None]
